FAERS Safety Report 10141859 (Version 1)
Quarter: 2014Q2

REPORT INFORMATION
  Report Type: Spontaneous
  Country: JP (occurrence: JP)
  Receive Date: 20140429
  Receipt Date: 20140429
  Transmission Date: 20141212
  Serious: Yes (Hospitalization)
  Sender: FDA-Public Use
  Company Number: JP-ASTELLAS-2014US003979

PATIENT
  Age: 83 Year
  Sex: Female

DRUGS (4)
  1. TARCEVA [Suspect]
     Indication: LUNG ADENOCARCINOMA
     Route: 048
     Dates: start: 20131108, end: 20131203
  2. TARCEVA [Suspect]
     Route: 048
     Dates: start: 20131217, end: 20131218
  3. TARCEVA [Suspect]
     Route: 048
     Dates: start: 20140122, end: 20140129
  4. TARCEVA [Suspect]
     Route: 048
     Dates: start: 20140130

REACTIONS (7)
  - Arthritis [Recovering/Resolving]
  - Chondrocalcinosis pyrophosphate [Unknown]
  - Hepatic function abnormal [Recovered/Resolved]
  - Pyrexia [Unknown]
  - Gastroenteritis [Unknown]
  - C-reactive protein increased [Recovered/Resolved]
  - Arthralgia [Unknown]
